FAERS Safety Report 14312748 (Version 1)
Quarter: 2017Q4

REPORT INFORMATION
  Report Type: Spontaneous
  Country: FI (occurrence: FI)
  Receive Date: 20171221
  Receipt Date: 20171221
  Transmission Date: 20180321
  Serious: Yes (Hospitalization)
  Sender: FDA-Public Use
  Company Number: PHHY2017FI188782

PATIENT
  Age: 41 Year
  Sex: Male

DRUGS (1)
  1. DIOVAN [Suspect]
     Active Substance: VALSARTAN
     Indication: MIGRAINE PROPHYLAXIS
     Route: 048

REACTIONS (9)
  - Tonsillitis [Unknown]
  - Splenomegaly [Unknown]
  - Molluscum contagiosum [Unknown]
  - Viral infection [Unknown]
  - Lymphocytosis [Unknown]
  - Infection [Unknown]
  - Pyrexia [Unknown]
  - Angioedema [Unknown]
  - Pericarditis [Unknown]
